FAERS Safety Report 8234581-7 (Version None)
Quarter: 2012Q1

REPORT INFORMATION
  Report Type: 
  Country: None (occurrence: None)
  Receive Date: 20120322
  Receipt Date: 20120314
  Transmission Date: 20120608
  Serious: Yes (Other)
  Sender: FDA-Public Use
  Company Number: 2011SP050484

PATIENT
  Age: 23 Year
  Sex: Female
  Weight: 73.6 kg

DRUGS (19)
  1. MIANSERIN (MIANSERIN HYDROCHLORIDE /00390602/) [Suspect]
     Indication: DEPRESSION
     Dosage: HS
     Dates: start: 20080925, end: 20081201
  2. IMOVANE (ZOPICLONE) [Suspect]
     Indication: INSOMNIA
     Dosage: 7.5 MG;QD
     Dates: start: 20060405, end: 20110401
  3. MAGNESIUM HYDROXID [Concomitant]
  4. ACETAMINOPHEN [Concomitant]
  5. PAROXETINE HYDROCHLORIDE [Concomitant]
  6. TRUXAL (CHLORPROTHIXENE) [Suspect]
     Indication: PSYCHOTIC DISORDER
     Dates: start: 20061201, end: 20110801
  7. VENLAFAXINE [Suspect]
     Indication: PRODUCT USED FOR UNKNOWN INDICATION
     Dates: start: 20060928, end: 20081201
  8. IBUMETIN [Concomitant]
  9. PAMOL [Concomitant]
  10. MIRTAZAPINE [Suspect]
     Indication: ANXIETY
     Dosage: HS
     Dates: start: 20060320
  11. TRAMADOL HCL [Suspect]
     Indication: HEADACHE
     Dosage: 100 MG;QD  : 50 MG
  12. TRAMADOL HCL [Suspect]
     Indication: NECK PAIN
     Dosage: 100 MG;QD  : 50 MG
  13. TRAMADOL HCL [Suspect]
     Indication: PAIN
     Dosage: 100 MG;QD  : 50 MG
  14. IBUPROFEN [Suspect]
     Indication: PAIN
     Dates: start: 20041201, end: 20110301
  15. IBUPROFEN [Suspect]
     Indication: HEADACHE
     Dates: start: 20041201, end: 20110301
  16. IBUPROFEN [Suspect]
     Indication: NECK PAIN
     Dates: start: 20041201, end: 20110301
  17. MIGEA RAPID (TOLFENAMACID) (TOLFENAMIC ACID) [Suspect]
     Indication: MIGRAINE
     Dates: start: 20100618, end: 20100813
  18. NORTRIPTYLINE HCL [Suspect]
     Indication: DEPRESSION
     Dates: start: 20090223, end: 20110701
  19. PAROXETINE HCL [Suspect]
     Indication: DEPRESSION
     Dosage: TID
     Dates: start: 20090223, end: 20100127

REACTIONS (18)
  - DEPRESSION [None]
  - ABDOMINAL RIGIDITY [None]
  - FLATULENCE [None]
  - DYSPEPSIA [None]
  - OEDEMA PERIPHERAL [None]
  - MIGRAINE [None]
  - HAEMORRHOIDAL HAEMORRHAGE [None]
  - SWELLING FACE [None]
  - CONSTIPATION [None]
  - TOXICITY TO VARIOUS AGENTS [None]
  - SYNCOPE [None]
  - SUICIDAL IDEATION [None]
  - ABDOMINAL DISTENSION [None]
  - ANXIETY [None]
  - INSOMNIA [None]
  - DRUG INEFFECTIVE [None]
  - FLUID RETENTION [None]
  - FAECES HARD [None]
